FAERS Safety Report 6675125-0 (Version None)
Quarter: 2010Q2

REPORT INFORMATION
  Report Type: 
  Country: None (occurrence: None)
  Receive Date: 20100407
  Receipt Date: 20100323
  Transmission Date: 20101027
  Serious: Yes (Other)
  Sender: FDA-Public Use
  Company Number: LEO-2010-00113

PATIENT
  Age: 77 Year
  Sex: Female
  Weight: 68 kg

DRUGS (2)
  1. INNOHEP [Suspect]
     Indication: MEDICAL DEVICE COMPLICATION
     Dosage: INTRAVENOUS
     Route: 042
     Dates: start: 20100118, end: 20100118
  2. INNOHEP [Suspect]
     Indication: PROPHYLAXIS
     Dosage: INTRAVENOUS
     Route: 042
     Dates: start: 20100118, end: 20100118

REACTIONS (2)
  - ANAPHYLACTIC REACTION [None]
  - PROCEDURAL COMPLICATION [None]
